FAERS Safety Report 9024993 (Version 2)
Quarter: 2014Q2

REPORT INFORMATION
  Report Type: Spontaneous
  Country: FR (occurrence: None)
  Receive Date: 20130104
  Receipt Date: 20140623
  Transmission Date: 20141212
  Serious: Yes (Other)
  Sender: FDA-Public Use
  Company Number: 2012000289

PATIENT
  Age: 55 Year
  Sex: Male

DRUGS (7)
  1. ACEON [Suspect]
     Indication: HYPERTENSION
     Route: 048
     Dates: start: 201009, end: 20121207
  2. TAHOR [Suspect]
     Indication: DYSLIPIDAEMIA
     Route: 048
     Dates: end: 20121207
  3. APIDRA (INSULIN GLULISINE) [Concomitant]
  4. OMEPRAZOLE (OMEPRAZOLE) [Concomitant]
  5. METFORMINE (METFORMIN HYDROCHLORIDE) [Concomitant]
  6. KARDEGIC (ACETYLSALICYLATE LYSINE) [Concomitant]
  7. BISOPROLOL (BISOPROLOL) [Concomitant]

REACTIONS (8)
  - Gamma-glutamyltransferase increased [None]
  - Blood alkaline phosphatase increased [None]
  - Weight decreased [None]
  - Alanine aminotransferase increased [None]
  - Aspartate aminotransferase increased [None]
  - Abdominal pain upper [None]
  - Jaundice [None]
  - Asthenia [None]
